FAERS Safety Report 9634145 (Version 2)
Quarter: 2013Q4

REPORT INFORMATION
  Report Type: Spontaneous
  Country: DE (occurrence: None)
  Receive Date: 20131017
  Receipt Date: 20131204
  Transmission Date: 20140711
  Serious: Yes (Other)
  Sender: FDA-Public Use
  Company Number: 2013MPI00617

PATIENT
  Sex: Male

DRUGS (6)
  1. BRENTUXIMAB VEDOTIN (BRENTUXIMAB VEDOTIN) INJECTION [Suspect]
     Indication: HODGKIN^S DISEASE
     Dates: start: 20130320
  2. CYCLOPHOSPHAMIDE (CYCLOPHOSPHAMIDE) [Suspect]
     Indication: HODGKIN^S DISEASE
     Dosage: UNKNOWN
  3. DOXORUBICIN [Suspect]
     Indication: HODGKIN^S DISEASE
  4. ETOPOSIDE (ETOPOSIDE) [Suspect]
     Indication: HODGKIN^S DISEASE
  5. PROCARBAZINE (PROCARBAZINE) [Suspect]
     Indication: HODGKIN^S DISEASE
     Route: 048
  6. PREDNISONE (PREDNISONE) [Suspect]
     Indication: HODGKIN^S DISEASE

REACTIONS (2)
  - Herpes zoster [None]
  - Erythema multiforme [None]
